FAERS Safety Report 21406872 (Version 1)
Quarter: 2022Q4

REPORT INFORMATION
  Report Type: Spontaneous
  Country: US (occurrence: US)
  Receive Date: 20221004
  Receipt Date: 20221004
  Transmission Date: 20230113
  Serious: No
  Sender: FDA-Public Use
  Company Number: US-BION-010246

PATIENT
  Age: 58 Year
  Sex: Female

DRUGS (1)
  1. IMODIUM A-D [Suspect]
     Active Substance: LOPERAMIDE HYDROCHLORIDE
     Indication: Diarrhoea
     Dosage: 1 PILL EACH TIME
     Dates: start: 20220104

REACTIONS (9)
  - Product physical issue [Unknown]
  - Cough [Recovering/Resolving]
  - Product quality issue [Unknown]
  - Burning sensation [Recovered/Resolved]
  - Pain [Recovered/Resolved]
  - Oropharyngeal pain [Recovered/Resolved]
  - Product taste abnormal [Unknown]
  - Feeling abnormal [Recovered/Resolved]
  - Product packaging difficult to open [Unknown]

NARRATIVE: CASE EVENT DATE: 20220104
